FAERS Safety Report 19503766 (Version 2)
Quarter: 2021Q4

REPORT INFORMATION
  Report Type: Spontaneous
  Country: CA (occurrence: CA)
  Receive Date: 20210707
  Receipt Date: 20211123
  Transmission Date: 20220303
  Serious: Yes (Other)
  Sender: FDA-Public Use
  Company Number: CA-MYLANLABS-2021M1028494

PATIENT
  Sex: Female
  Weight: 80.2 kg

DRUGS (8)
  1. OGIVRI [Suspect]
     Active Substance: TRASTUZUMAB-DKST
     Indication: Breast cancer metastatic
     Dosage: 414 MILLIGRAM, Q3W
     Dates: start: 20210420
  2. OGIVRI [Suspect]
     Active Substance: TRASTUZUMAB-DKST
     Dosage: 414 MILLIGRAM, Q3W
     Dates: start: 2021
  3. OGIVRI [Suspect]
     Active Substance: TRASTUZUMAB-DKST
     Dosage: 414 MILLIGRAM, Q3W
     Dates: start: 2021
  4. OGIVRI [Suspect]
     Active Substance: TRASTUZUMAB-DKST
     Dosage: 384, Q3W
     Route: 042
  5. OGIVRI [Suspect]
     Active Substance: TRASTUZUMAB-DKST
     Dosage: 378 MILLIGRAM
     Dates: start: 20210420
  6. OGIVRI [Suspect]
     Active Substance: TRASTUZUMAB-DKST
     Dosage: 360 MILLIGRAM, Q3W
     Route: 042
     Dates: start: 20210420
  7. CIMETIDINE [Suspect]
     Active Substance: CIMETIDINE
     Indication: Premedication
     Dosage: 300 MILLIGRAM
     Route: 048
     Dates: start: 20210420
  8. SOLU-CORTEF [Suspect]
     Active Substance: HYDROCORTISONE SODIUM SUCCINATE
     Indication: Premedication
     Dosage: 100 MILLIGRAM
     Route: 042
     Dates: start: 20210420

REACTIONS (3)
  - Weight decreased [Not Recovered/Not Resolved]
  - Hypotension [Unknown]
  - Heart rate decreased [Unknown]

NARRATIVE: CASE EVENT DATE: 20210101
